FAERS Safety Report 19813415 (Version 1)
Quarter: 2021Q3

REPORT INFORMATION
  Report Type: Spontaneous
  Country: US (occurrence: US)
  Receive Date: 20210907
  Receipt Date: 20210907
  Transmission Date: 20211014
  Serious: No
  Sender: FDA-Public Use
  Company Number: None

PATIENT
  Age: 77 Year
  Sex: Male
  Weight: 65 kg

DRUGS (1)
  1. LISINOPRIL (LISINOPRIL 2.5MG TAB) [Suspect]
     Active Substance: LISINOPRIL
     Indication: HYPERTENSION
     Route: 048
     Dates: start: 20191112, end: 20210602

REACTIONS (7)
  - Angioedema [None]
  - Lip swelling [None]
  - Anaphylactic reaction [None]
  - Swelling face [None]
  - Gastrooesophageal reflux disease [None]
  - Oropharyngeal discomfort [None]
  - Drug hypersensitivity [None]

NARRATIVE: CASE EVENT DATE: 20210602
